FAERS Safety Report 13618145 (Version 2)
Quarter: 2017Q2

REPORT INFORMATION
  Report Type: Report from Study
  Country: US (occurrence: US)
  Receive Date: 20170606
  Receipt Date: 20170615
  Transmission Date: 20170830
  Serious: Yes (Other)
  Sender: FDA-Public Use
  Company Number: US-AMGEN-USASL2017084812

PATIENT
  Age: 48 Year
  Sex: Female

DRUGS (1)
  1. ENBREL [Suspect]
     Active Substance: ETANERCEPT
     Indication: PSORIASIS
     Dosage: 50 MG, 2 TIMES/WK
     Route: 065
     Dates: start: 20170601

REACTIONS (9)
  - Hyperhidrosis [Unknown]
  - Cold sweat [Unknown]
  - Stress [Unknown]
  - Pancreatitis chronic [Unknown]
  - Type 1 diabetes mellitus [Unknown]
  - Feeling cold [Unknown]
  - Injection site vesicles [Unknown]
  - Tinnitus [Unknown]
  - Psoriasis [Unknown]

NARRATIVE: CASE EVENT DATE: 201706
